FAERS Safety Report 5991610-9 (Version None)
Quarter: 2008Q4

REPORT INFORMATION
  Report Type: 
  Country: None (occurrence: None)
  Receive Date: 20081211
  Receipt Date: 20080501
  Transmission Date: 20090506
  Serious: No
  Sender: FDA-Public Use
  Company Number: US-AMGEN-KDL277371

PATIENT
  Sex: Female

DRUGS (2)
  1. ENBREL [Suspect]
     Indication: PSORIATIC ARTHROPATHY
     Route: 058
     Dates: start: 20030610
  2. ENBREL [Suspect]
     Indication: PSORIASIS

REACTIONS (3)
  - ARTHRALGIA [None]
  - JOINT SWELLING [None]
  - PSORIASIS [None]
